FAERS Safety Report 25859252 (Version 1)
Quarter: 2025Q3

REPORT INFORMATION
  Report Type: Spontaneous
  Country: GB (occurrence: GB)
  Receive Date: 20250929
  Receipt Date: 20250929
  Transmission Date: 20251021
  Serious: Yes (Other)
  Sender: ELI LILLY AND COMPANY
  Company Number: None

PATIENT

DRUGS (1)
  1. IXEKIZUMAB [Suspect]
     Active Substance: IXEKIZUMAB
     Indication: Psoriasis
     Route: 065
     Dates: start: 20250915

REACTIONS (3)
  - Dysarthria [Recovered/Resolved]
  - Confusional state [Unknown]
  - Vertigo [Unknown]

NARRATIVE: CASE EVENT DATE: 20250915
